FAERS Safety Report 9579628 (Version 4)
Quarter: 2014Q1

REPORT INFORMATION
  Report Type: Spontaneous
  Country: JP (occurrence: JP)
  Receive Date: 20131002
  Receipt Date: 20140321
  Transmission Date: 20141002
  Serious: Yes (Life-Threatening, Hospitalization, Other)
  Sender: FDA-Public Use
  Company Number: JP-009507513-1309JPN013786

PATIENT
  Age: 62 Year
  Sex: Female
  Weight: 41 kg

DRUGS (20)
  1. PREMINENT TABLETS [Suspect]
     Indication: HYPERTENSION
     Dosage: 1 DF, QD, AFTER THE SUPPER
     Route: 048
     Dates: end: 201309
  2. RENIVACE [Suspect]
     Indication: HYPERTENSION
     Dosage: 5 MG, QD, AFTER THE SUPPER
     Route: 048
     Dates: end: 201309
  3. MILNACIPRAN HYDROCHLORIDE [Concomitant]
     Dosage: 50 MG IN THE MORNING AND 100 MG IN THE EVENING
     Route: 048
     Dates: end: 2013
  4. CRESTOR [Concomitant]
     Dosage: 1 DF, QD, AFTER THE SUPPER
     Route: 048
     Dates: end: 2013
  5. LOXONIN [Concomitant]
     Dosage: 120 MG, QD, AFTER THE SUPPER
     Route: 048
     Dates: end: 2013
  6. FAMOTIDINE [Concomitant]
     Dosage: 1 DF, BID
     Route: 048
     Dates: end: 2013
  7. SEROQUEL [Concomitant]
     Dosage: 50 MG, BID, AFTER THE SUPPER AND BEFORE SLEEP
     Route: 048
     Dates: end: 2013
  8. MUCOSTA [Concomitant]
     Dosage: 100 MG, QD, AFTER THE SUPPER
     Route: 048
  9. HYPEN [Concomitant]
     Dosage: 100 MG, BID, AFTER THE MEAL IN THE MORNING AND EVENING
     Route: 048
  10. BLADDERON [Concomitant]
     Dosage: 200 MG, TID, AFTER EACH MEAL
     Route: 048
  11. MERISLON [Concomitant]
     Dosage: 1 DF, TID, AFTER EACH MEAL
     Route: 048
  12. EXCELASE [Concomitant]
     Dosage: 1 DF, TID, AFTER EACH MEAL
     Route: 048
  13. CEPHADOL [Concomitant]
     Dosage: 25 MG, TID, AFTER EACH MEAL
     Route: 048
  14. SEPAZON [Concomitant]
     Dosage: 2 MG, BID
     Route: 048
  15. BROTIZOLAM [Concomitant]
     Dosage: 0.5 MG, QD, BEFORE SLEEP
     Route: 048
     Dates: end: 201307
  16. BROTIZOLAM [Concomitant]
     Dosage: 0.25 MG, QD
     Route: 048
     Dates: start: 201307
  17. FLUNITRAZEPAM [Concomitant]
     Dosage: 2 MG, QD, BEFORE SLEEP
     Route: 048
     Dates: start: 201307
  18. GASMOTIN [Concomitant]
     Dosage: 5 MG, TID, AFTER EACH MEAL
     Route: 048
  19. BOFU-TSUSHO-SAN [Concomitant]
     Dosage: 3 G, TID, BEFORE EACH MEAL
     Route: 048
  20. DAIO-KANZO-TO [Concomitant]
     Dosage: 3 G, TID, BEFORE EACH MEAL
     Route: 048

REACTIONS (4)
  - Shock [Recovered/Resolved]
  - Suicide attempt [Unknown]
  - Intentional overdose [Unknown]
  - Toxicity to various agents [Unknown]
